FAERS Safety Report 8896147 (Version 2)
Quarter: 2012Q4

REPORT INFORMATION
  Report Type: 
  Country: JP (occurrence: JP)
  Receive Date: 20121108
  Receipt Date: 20121220
  Transmission Date: 20130627
  Serious: Yes (Other)
  Sender: FDA-Public Use
  Company Number: JP-OTSUKA-JP-2012-16649

PATIENT
  Age: 76 Year
  Sex: Female

DRUGS (9)
  1. SAMSCA [Suspect]
     Dosage: 15 Mg milligram(s), qd
     Route: 048
     Dates: start: 20120927
  2. OLMETEC [Concomitant]
     Route: 048
  3. AMLODIN [Concomitant]
     Route: 048
  4. MADOPAR [Concomitant]
     Route: 048
  5. THEODUR [Concomitant]
     Route: 048
  6. VESICARE [Concomitant]
     Route: 048
  7. MAGNESIUM OXIDE [Concomitant]
     Route: 048
  8. SENNAL [Concomitant]
     Route: 048
  9. DAIKENTYUTO [Concomitant]
     Route: 048

REACTIONS (1)
  - Hypernatraemia [Recovering/Resolving]
